APPROVED DRUG PRODUCT: SELEGILINE HYDROCHLORIDE
Active Ingredient: SELEGILINE HYDROCHLORIDE
Strength: 5MG
Dosage Form/Route: TABLET;ORAL
Application: A074756 | Product #001
Applicant: COSETTE PHARMACEUTICALS INC
Approved: Nov 25, 1998 | RLD: No | RS: No | Type: DISCN